FAERS Safety Report 23588899 (Version 1)
Quarter: 2024Q1

REPORT INFORMATION
  Report Type: Spontaneous
  Country: GB (occurrence: GB)
  Receive Date: 20240303
  Receipt Date: 20240303
  Transmission Date: 20240410
  Serious: Yes (Other)
  Sender: FDA-Public Use
  Company Number: GB-MHRA-MED-202402131858392500-FBYJG

PATIENT
  Age: 56 Year
  Sex: Female
  Weight: 82 kg

DRUGS (2)
  1. BISOPROLOL [Suspect]
     Active Substance: BISOPROLOL\BISOPROLOL FUMARATE
     Indication: Hypertension
     Dosage: 1.25 MILLIGRAM
     Route: 065
     Dates: start: 20231221, end: 20240129
  2. LANSOPRAZOLE [Concomitant]
     Active Substance: LANSOPRAZOLE
     Indication: Dyspepsia
     Dosage: UNK
     Route: 065
     Dates: start: 20231221

REACTIONS (10)
  - Dizziness [Unknown]
  - Lethargy [Unknown]
  - Chest pain [Unknown]
  - Palpitations [Unknown]
  - Insomnia [Recovering/Resolving]
  - Heart rate irregular [Recovering/Resolving]
  - Anxiety [Unknown]
  - Malaise [Unknown]
  - Fatigue [Unknown]
  - Vision blurred [Unknown]
